FAERS Safety Report 9267004 (Version 1)
Quarter: 2013Q2

REPORT INFORMATION
  Report Type: Spontaneous
  Country: US (occurrence: US)
  Receive Date: 20130502
  Receipt Date: 20130502
  Transmission Date: 20140414
  Serious: No
  Sender: FDA-Public Use
  Company Number: US-PFIZER INC-2013133258

PATIENT
  Age: 68 Year
  Sex: Male
  Weight: 74.83 kg

DRUGS (2)
  1. TIKOSYN [Suspect]
     Indication: ATRIAL FIBRILLATION
     Dosage: 500 UG, TWO TIMES A DAY
     Route: 048
  2. BACTRIM [Suspect]
     Indication: SKIN BACTERIAL INFECTION
     Dosage: UNK

REACTIONS (2)
  - Skin bacterial infection [Unknown]
  - Arrhythmia [Unknown]
